FAERS Safety Report 11108507 (Version 1)
Quarter: 2015Q2

REPORT INFORMATION
  Report Type: Spontaneous
  Country: US (occurrence: US)
  Receive Date: 20150513
  Receipt Date: 20150513
  Transmission Date: 20150821
  Serious: No
  Sender: FDA-Public Use
  Company Number: US-009507513-1505USA004631

PATIENT
  Age: 19 Year
  Sex: Female
  Weight: 61.22 kg

DRUGS (1)
  1. NEXPLANON [Suspect]
     Active Substance: ETONOGESTREL
     Indication: CONTRACEPTION
     Dosage: EVERY 3 YEARS, IN LEFT ARM
     Route: 059
     Dates: start: 20140602

REACTIONS (6)
  - Injection site rash [Unknown]
  - Decreased appetite [Unknown]
  - Pain [Unknown]
  - Weight increased [Unknown]
  - Mood swings [Unknown]
  - Nausea [Unknown]

NARRATIVE: CASE EVENT DATE: 20140602
